FAERS Safety Report 8893141 (Version 1)
Quarter: 2012Q4

REPORT INFORMATION
  Report Type: 
  Country: US (occurrence: US)
  Receive Date: 20121107
  Receipt Date: 20121107
  Transmission Date: 20130627
  Serious: No
  Sender: FDA-Public Use
  Company Number: US-AMGEN-USASP2011052265

PATIENT
  Age: 63 Year
  Sex: Female
  Weight: 90.7 kg

DRUGS (11)
  1. ENBREL [Suspect]
     Indication: PRODUCT USED FOR UNKNOWN INDICATION
     Dosage: 25 mg, 2 times/wk
     Route: 058
  2. LASIX [Concomitant]
     Dosage: 20 mg, UNK
  3. PREDNISONE [Concomitant]
     Dosage: 1 mg, UNK
  4. SYNTHROID [Concomitant]
     Dosage: 88 UNK, UNK
  5. ARAVA [Concomitant]
     Dosage: 10 mg, UNK
  6. CYCLOBENZAPRIN HYDROCHLORIDE [Concomitant]
     Dosage: 10 mg, UNK
  7. VITAMIN D [Concomitant]
  8. MULTIVITAMIN [Concomitant]
  9. CLARITIN [Concomitant]
     Dosage: 10 mg, UNK
  10. TRAMADOL HCL [Concomitant]
     Dosage: 100 mg, UNK
  11. PROLIA [Concomitant]
     Dosage: 60 mg, UNK

REACTIONS (2)
  - Sinusitis [Recovered/Resolved]
  - Therapeutic response decreased [Unknown]
